FAERS Safety Report 13349092 (Version 1)
Quarter: 2017Q1

REPORT INFORMATION
  Report Type: Spontaneous
  Country: US (occurrence: US)
  Receive Date: 20170320
  Receipt Date: 20170320
  Transmission Date: 20170428
  Serious: No
  Sender: FDA-Public Use
  Company Number: US-TEVA-717050ACC

PATIENT
  Sex: Female
  Weight: 52.21 kg

DRUGS (1)
  1. CYCLOCAP (CICLOSPORIN) [Suspect]
     Active Substance: CYCLOSPORINE
     Indication: ECZEMA
     Dates: start: 201607

REACTIONS (5)
  - Dry skin [Unknown]
  - Paraesthesia [Unknown]
  - Hair growth abnormal [Unknown]
  - Headache [Unknown]
  - Dizziness [Unknown]
